FAERS Safety Report 9166486 (Version 1)
Quarter: 2013Q1

REPORT INFORMATION
  Report Type: Report from Study
  Country: US (occurrence: US)
  Receive Date: 20130315
  Receipt Date: 20130315
  Transmission Date: 20140127
  Serious: Yes (Life-Threatening)
  Sender: FDA-Public Use
  Company Number: US-009507513-1303USA006820

PATIENT
  Age: 53 Year
  Sex: Female
  Weight: 68 kg

DRUGS (3)
  1. REBETOL [Suspect]
     Indication: CHRONIC HEPATITIS C
     Dosage: MOST RECENT DOSE 600 MG ON 14-AUG-2012
     Route: 048
     Dates: start: 20120618, end: 20120814
  2. VICTRELIS [Suspect]
     Indication: CHRONIC HEPATITIS C
     Dosage: MOST RECENT DOSE 2400 MG ON 14-AUG-2012
     Route: 048
     Dates: start: 20120716, end: 20120814
  3. PEGINTERFERON ALFA-2A [Suspect]
     Indication: CHRONIC HEPATITIS C
     Dosage: MOST RECENT DOSE 180 MCG ON 13-AUG-2012
     Dates: start: 20120618, end: 20120814

REACTIONS (1)
  - Suicidal ideation [Recovered/Resolved]
